FAERS Safety Report 20520274 (Version 1)
Quarter: 2022Q1

REPORT INFORMATION
  Report Type: Spontaneous
  Country: US (occurrence: US)
  Receive Date: 20220225
  Receipt Date: 20220225
  Transmission Date: 20220423
  Serious: No
  Sender: FDA-Public Use
  Company Number: US-PFIZER INC-202101664516

PATIENT

DRUGS (1)
  1. IBRANCE [Suspect]
     Active Substance: PALBOCICLIB
     Indication: Breast cancer metastatic
     Dosage: UNK, CYCLIC 2 OF IBRANCE
     Dates: start: 20211026

REACTIONS (3)
  - Alopecia [Unknown]
  - White blood cell count abnormal [Unknown]
  - Nail disorder [Unknown]
